FAERS Safety Report 19153239 (Version 2)
Quarter: 2021Q3

REPORT INFORMATION
  Report Type: Spontaneous
  Country: IR (occurrence: IR)
  Receive Date: 20210419
  Receipt Date: 20210710
  Transmission Date: 20211014
  Serious: Yes (Life-Threatening, Hospitalization, Disabling, Other)
  Sender: FDA-Public Use
  Company Number: IR-MACLEODS PHARMACEUTICALS US LTD-MAC2021030849

PATIENT

DRUGS (1)
  1. TRAMADOL TABLETS [Suspect]
     Active Substance: TRAMADOL HYDROCHLORIDE
     Indication: PRODUCT USED FOR UNKNOWN INDICATION
     Dosage: 2 DOSAGE FORM, TOTAL, 200 MG
     Route: 065

REACTIONS (5)
  - Loss of consciousness [Recovering/Resolving]
  - Generalised tonic-clonic seizure [Recovering/Resolving]
  - Toxicity to various agents [Recovering/Resolving]
  - Guillain-Barre syndrome [Recovering/Resolving]
  - Respiratory distress [Recovered/Resolved]
